FAERS Safety Report 9460171 (Version 1)
Quarter: 2013Q3

REPORT INFORMATION
  Report Type: Spontaneous
  Country: PL (occurrence: PL)
  Receive Date: 20130815
  Receipt Date: 20130815
  Transmission Date: 20140515
  Serious: Yes (Hospitalization, Other)
  Sender: FDA-Public Use
  Company Number: PL-BAXTER-2013BAX030082

PATIENT
  Age: 19 Year
  Sex: Male

DRUGS (10)
  1. ENDOXAN [Suspect]
     Indication: IMMUNOSUPPRESSION
     Route: 042
  2. ENCORTON                           /00044701/ [Concomitant]
     Indication: IMMUNOSUPPRESSION
     Route: 065
  3. ENCORTON                           /00044701/ [Concomitant]
     Route: 065
  4. METYPRED                           /00049601/ [Concomitant]
     Indication: IMMUNOSUPPRESSION
     Route: 048
  5. FUROSEMIDE [Concomitant]
     Indication: POLYURIA
     Route: 048
  6. CYCLOPHOSPHAMIDE [Concomitant]
     Indication: IMMUNOSUPPRESSION
     Route: 048
  7. SOLU-MEDROL [Concomitant]
     Indication: IMMUNOSUPPRESSION
     Dosage: 1 BOLUS
     Route: 065
  8. SOLU-MEDROL [Concomitant]
     Route: 065
  9. SOLU-MEDROL [Concomitant]
     Route: 042
  10. SOLU-MEDROL [Concomitant]
     Route: 042

REACTIONS (5)
  - Pulmonary haemorrhage [Recovered/Resolved]
  - Gastrointestinal fungal infection [Unknown]
  - Sinus disorder [Recovered/Resolved]
  - Candida infection [Recovered/Resolved]
  - Candida infection [Recovered/Resolved]
